FAERS Safety Report 4285343-7 (Version None)
Quarter: 2004Q1

REPORT INFORMATION
  Report Type: 
  Country: None (occurrence: None)
  Receive Date: 20040203
  Receipt Date: 20040203
  Transmission Date: 20041129
  Serious: Yes (Hospitalization)
  Sender: FDA-Public Use
  Company Number: None

PATIENT
  Age: 88 Year
  Sex: Male

DRUGS (7)
  1. ASPIRIN [Suspect]
     Indication: ARTHRITIS
     Dosage: 81 MG PO
     Route: 048
  2. ROFECOXIB [Suspect]
     Indication: ARTHRITIS
  3. DONEPEZIL [Concomitant]
  4. FUROSEMIDE TE [Concomitant]
  5. TERAZOSIN HCL [Concomitant]
  6. INSULIN [Concomitant]
  7. CARBIDOPA AND LEVODOPA [Concomitant]

REACTIONS (3)
  - POST PROCEDURAL HAEMORRHAGE [None]
  - RECTAL HAEMORRHAGE [None]
  - SYNCOPE [None]
